FAERS Safety Report 7689557-5 (Version None)
Quarter: 2011Q3

REPORT INFORMATION
  Report Type: 
  Country: None (occurrence: None)
  Receive Date: 20110817
  Receipt Date: 20110815
  Transmission Date: 20111222
  Serious: Yes (Death, Life-Threatening, Hospitalization, Disabling)
  Sender: FDA-Public Use
  Company Number: JP-B.I. PHARMACEUTICALS,INC./RIDGEFIELD-2011-BP-16407NB

PATIENT
  Sex: Female
  Weight: 40 kg

DRUGS (7)
  1. ACARDI [Concomitant]
     Dosage: 2.5 MG
     Route: 048
     Dates: end: 20110622
  2. PIROLACTON [Concomitant]
     Dosage: 25 MG
     Route: 048
     Dates: end: 20110622
  3. ALLOPURINOL [Concomitant]
     Dosage: 200 MG
     Route: 048
     Dates: end: 20110622
  4. EVISTA [Concomitant]
     Dosage: 60 MG
     Route: 048
     Dates: end: 20110622
  5. STOMARCON [Concomitant]
     Dosage: 20 MG
     Route: 048
     Dates: end: 20110622
  6. PRADAXA [Suspect]
     Dosage: 220 MG
     Route: 048
     Dates: start: 20110501, end: 20110622
  7. DOMPERIDONE [Concomitant]
     Dosage: 10 MG
     Route: 048
     Dates: end: 20110622

REACTIONS (3)
  - GASTROINTESTINAL HAEMORRHAGE [None]
  - MARASMUS [None]
  - HAEMORRHAGE SUBCUTANEOUS [None]
